FAERS Safety Report 13641268 (Version 2)
Quarter: 2017Q3

REPORT INFORMATION
  Report Type: Spontaneous
  Country: HK (occurrence: HK)
  Receive Date: 20170612
  Receipt Date: 20170802
  Transmission Date: 20171127
  Serious: Yes (Other)
  Sender: FDA-Public Use
  Company Number: HK-ROCHE-1936898

PATIENT
  Age: 61 Year
  Sex: Female

DRUGS (7)
  1. KADCYLA [Suspect]
     Active Substance: ADO-TRASTUZUMAB EMTANSINE
     Indication: INVASIVE DUCTAL BREAST CARCINOMA
     Route: 065
     Dates: start: 201406
  2. TAMOXIFEN [Concomitant]
     Active Substance: TAMOXIFEN
  3. DICLOFENAC [Concomitant]
     Active Substance: DICLOFENAC
  4. TRAMADOL. [Concomitant]
     Active Substance: TRAMADOL
  5. ZOLEDRONIC ACID [Concomitant]
     Active Substance: ZOLEDRONIC ACID
  6. HERCEPTIN [Suspect]
     Active Substance: TRASTUZUMAB
     Indication: INVASIVE DUCTAL BREAST CARCINOMA
     Dosage: STARTED AFTER -APR-2011
     Route: 065
     Dates: end: 201110
  7. PACLITAXEL. [Concomitant]
     Active Substance: PACLITAXEL

REACTIONS (4)
  - Pulmonary mass [Unknown]
  - Epistaxis [Unknown]
  - Gastrointestinal tract adenoma [Unknown]
  - Gingival bleeding [Unknown]

NARRATIVE: CASE EVENT DATE: 201510
